FAERS Safety Report 7147810-8 (Version None)
Quarter: 2010Q4

REPORT INFORMATION
  Report Type: 
  Country: None (occurrence: None)
  Receive Date: 20101207
  Receipt Date: 20101207
  Transmission Date: 20110411
  Serious: Yes (Hospitalization, Other)
  Sender: FDA-Public Use
  Company Number: None

PATIENT
  Age: 47 Year
  Sex: Female
  Weight: 68.0396 kg

DRUGS (5)
  1. SUBOXONE [Suspect]
     Indication: REVERSAL OF OPIATE ACTIVITY
     Dosage: 16 MGS DAY SL
     Route: 060
     Dates: start: 20100923, end: 20100926
  2. SUBOXONE [Suspect]
     Indication: REVERSAL OF OPIATE ACTIVITY
     Dosage: 16 MGS DAY SL
     Route: 060
     Dates: start: 20101007, end: 20101202
  3. SYTHROID [Concomitant]
  4. PROZAC [Concomitant]
  5. WELLBUTRIN [Concomitant]

REACTIONS (8)
  - DRUG HYPERSENSITIVITY [None]
  - HEADACHE [None]
  - JOINT STIFFNESS [None]
  - JOINT SWELLING [None]
  - PAIN IN EXTREMITY [None]
  - PYREXIA [None]
  - SKIN GRAFT FAILURE [None]
  - URTICARIA [None]
